FAERS Safety Report 16840338 (Version 2)
Quarter: 2022Q1

REPORT INFORMATION
  Report Type: Report from Study
  Country: US (occurrence: US)
  Receive Date: 20190923
  Receipt Date: 20220106
  Transmission Date: 20220423
  Serious: Yes (Hospitalization)
  Sender: FDA-Public Use
  Company Number: US-PFIZER INC-2019400136

PATIENT
  Age: 6 Year
  Sex: Male
  Weight: 24.5 kg

DRUGS (5)
  1. TEMSIROLIMUS [Suspect]
     Active Substance: TEMSIROLIMUS
     Dosage: 15 MG/M2, CYCLIC (IV OVER 30-60 MINUTES ON DAYS 1, 8, AND 15 FOR CYCLE 1-4)
     Route: 042
     Dates: start: 20190314
  2. VINCRISTINE SULFATE [Suspect]
     Active Substance: VINCRISTINE SULFATE
     Dosage: 1.5 MG/M2, CYCLIC (IV OVER 1 MINUTE OR INFUSION VIA MINIBAG ON DAYS 1, 8, AND 15 FOR CYCLE 1-4; ON )
     Route: 042
     Dates: start: 20190314
  3. CAMPTOSAR [Suspect]
     Active Substance: IRINOTECAN HYDROCHLORIDE
     Dosage: 50 MG/M2, CYCLIC (IV OVER 90 MINUTES ON DAYS 1-5 OF CYCLES 2 AND 4; ON DAYS 1-5 OF CYCLES 6 AND 7)
     Route: 042
     Dates: start: 20190405
  4. DACTINOMYCIN [Suspect]
     Active Substance: DACTINOMYCIN
     Dosage: 0.05 MG/KG, CYCLIC (IV OVER 1-5 MINUTES ON DAY 1 OF CYCLES 1 AND 3; ON DAY 1 OF CYCLES 5)
     Route: 042
     Dates: start: 20190314
  5. CYCLOPHOSPHAMIDE [Suspect]
     Active Substance: CYCLOPHOSPHAMIDE
     Dosage: 1200 MG/M2, CYCLIC (IV OVER 60 MINUTES ON DAY 1 OF CYCLES 1 AND 3; ON DAY 1 OF CYCLES 5)
     Route: 042
     Dates: start: 20190314

REACTIONS (1)
  - Dehydration [Recovering/Resolving]

NARRATIVE: CASE EVENT DATE: 20190803
